FAERS Safety Report 6866543-6 (Version None)
Quarter: 2010Q2

REPORT INFORMATION
  Report Type: 
  Country: None (occurrence: None)
  Receive Date: 20100528
  Receipt Date: 20100129
  Transmission Date: 20101027
  Serious: No
  Sender: FDA-Public Use
  Company Number: 2009308605

PATIENT
  Age: 77 Year
  Sex: Female

DRUGS (1)
  1. TOVIAZ [Suspect]
     Dosage: 4 MG; 8 MG

REACTIONS (3)
  - ABDOMINAL DISCOMFORT [None]
  - NOCTURIA [None]
  - URINARY RETENTION [None]
